FAERS Safety Report 9106673 (Version 1)
Quarter: 2013Q1

REPORT INFORMATION
  Report Type: Spontaneous
  Country: US (occurrence: US)
  Receive Date: 20130222
  Receipt Date: 20130222
  Transmission Date: 20140127
  Serious: Yes (Disabling, Other)
  Sender: FDA-Public Use
  Company Number: CHPA2012US026395

PATIENT
  Age: 64 Year
  Sex: Female

DRUGS (1)
  1. MYOFLEX ANALGESIC CREME [Suspect]
     Indication: MYALGIA
     Dosage: UNK, AS NEEDED
     Route: 061

REACTIONS (7)
  - Abasia [Not Recovered/Not Resolved]
  - Fibromyalgia [Not Recovered/Not Resolved]
  - Blood cholesterol increased [Recovered/Resolved]
  - Influenza [Unknown]
  - Tremor [Unknown]
  - Chills [Unknown]
  - Off label use [Unknown]
